FAERS Safety Report 8862779 (Version 1)
Quarter: 2012Q4

REPORT INFORMATION
  Report Type: Report from Study
  Country: US (occurrence: US)
  Receive Date: 20121026
  Receipt Date: 20121026
  Transmission Date: 20130627
  Serious: Yes (Other)
  Sender: FDA-Public Use
  Company Number: US-JNJFOC-20121011702

PATIENT
  Sex: Female
  Weight: 127.01 kg

DRUGS (2)
  1. STELARA [Suspect]
     Indication: PSORIASIS
     Route: 058
     Dates: start: 2010
  2. SIMVASTATIN [Suspect]
     Indication: BLOOD CHOLESTEROL
     Route: 048
     Dates: end: 201201

REACTIONS (7)
  - Abasia [Unknown]
  - Arthropathy [Not Recovered/Not Resolved]
  - Swelling [Unknown]
  - Pain [Unknown]
  - Muscle fatigue [Recovered/Resolved]
  - Stress [Not Recovered/Not Resolved]
  - Psoriasis [Not Recovered/Not Resolved]
